FAERS Safety Report 21424793 (Version 1)
Quarter: 2022Q4

REPORT INFORMATION
  Report Type: Spontaneous
  Country: US (occurrence: US)
  Receive Date: 20221008
  Receipt Date: 20221008
  Transmission Date: 20230113
  Serious: Yes (Other)
  Sender: FDA-Public Use
  Company Number: US-BRISTOL-MYERS SQUIBB COMPANY-2022-109451

PATIENT
  Age: 55 Year
  Sex: Male

DRUGS (2)
  1. SPRYCEL [Suspect]
     Active Substance: DASATINIB
     Indication: Chronic myeloid leukaemia
     Route: 048
     Dates: start: 20141010
  2. LAMOTRIGINE [Concomitant]
     Active Substance: LAMOTRIGINE
     Indication: Product used for unknown indication
     Route: 065

REACTIONS (6)
  - Abdominal pain upper [Unknown]
  - Respiratory disorder [Unknown]
  - Fatigue [Unknown]
  - Pleural effusion [Unknown]
  - Fluid retention [Unknown]
  - Vomiting [Unknown]

NARRATIVE: CASE EVENT DATE: 20141001
